FAERS Safety Report 8985231 (Version 1)
Quarter: 2012Q4

REPORT INFORMATION
  Report Type: 
  Country: US (occurrence: US)
  Receive Date: 20121226
  Receipt Date: 20121226
  Transmission Date: 20130627
  Serious: Yes (Congenital Anomaly, Other)
  Sender: FDA-Public Use
  Company Number: US-JNJFOC-20121209850

PATIENT

DRUGS (1)
  1. DIPHENHYDRAMINE [Suspect]
     Indication: FOETAL EXPOSURE DURING PREGNANCY
     Route: 065

REACTIONS (3)
  - Congenital anomaly [Unknown]
  - Transposition of the great vessels [Unknown]
  - Maternal drugs affecting foetus [None]
